FAERS Safety Report 9154582 (Version 1)
Quarter: 2013Q1

REPORT INFORMATION
  Report Type: Spontaneous
  Country: US (occurrence: None)
  Receive Date: 20130308
  Receipt Date: 20130308
  Transmission Date: 20140127
  Serious: Yes (Other)
  Sender: FDA-Public Use
  Company Number: None

PATIENT
  Sex: Female
  Weight: 55.34 kg

DRUGS (1)
  1. SERTRALINE 50MG CAMBER P [Suspect]
     Dosage: 50MG QD PO
     Route: 048
     Dates: start: 20120707, end: 20121217

REACTIONS (13)
  - Asthenia [None]
  - Nausea [None]
  - Decreased appetite [None]
  - Weight decreased [None]
  - Alopecia [None]
  - Asthenia [None]
  - Somnolence [None]
  - Chills [None]
  - Tremor [None]
  - Musculoskeletal stiffness [None]
  - Hypoaesthesia [None]
  - Pain in extremity [None]
  - Depression [None]
